FAERS Safety Report 15706609 (Version 1)
Quarter: 2018Q4

REPORT INFORMATION
  Report Type: Spontaneous
  Country: NL (occurrence: NL)
  Receive Date: 20181210
  Receipt Date: 20181210
  Transmission Date: 20190205
  Serious: Yes (Hospitalization)
  Sender: FDA-Public Use
  Company Number: PHHY2018NL179679

PATIENT
  Age: 75 Year
  Sex: Male

DRUGS (10)
  1. LORAZEPAM. [Interacting]
     Active Substance: LORAZEPAM
     Indication: INSOMNIA
     Dosage: 1 MG, QD (1 KEER PER DAG 1 STUK(S))
     Route: 048
     Dates: start: 20160321, end: 20160401
  2. ACETYLSALICYLIC ACID [Concomitant]
     Active Substance: ASPIRIN
     Indication: PRODUCT USED FOR UNKNOWN INDICATION
     Dosage: 80 MG, QD (1 KEER PER DAG 1 STUK(S))
     Route: 048
  3. PRAVASTATINE [Concomitant]
     Active Substance: PRAVASTATIN
     Indication: PRODUCT USED FOR UNKNOWN INDICATION
     Dosage: 20 MG, QD (1 KEER PER DAG 1 STUK(S))
     Route: 048
  4. HALOPERIDOL. [Interacting]
     Active Substance: HALOPERIDOL
     Indication: DEMENTIA
  5. DIVISUN [Concomitant]
     Indication: PRODUCT USED FOR UNKNOWN INDICATION
     Dosage: 800 IU, QD (1 KEER PER DAG 1 STUK(S))
     Route: 048
  6. PERSANTIN [Concomitant]
     Active Substance: DIPYRIDAMOLE
     Indication: PRODUCT USED FOR UNKNOWN INDICATION
     Dosage: 200 MG, QD (2 KEER PER DAG 1 STUK(S))
     Route: 048
  7. HALOPERIDOL. [Suspect]
     Active Substance: HALOPERIDOL
     Indication: RESTLESSNESS
     Dosage: 1 MG, QD (2 KEER PER DAG 1 STUK(S))
     Route: 048
     Dates: start: 2015
  8. METFORMINE [Concomitant]
     Active Substance: METFORMIN HYDROCHLORIDE
     Indication: PRODUCT USED FOR UNKNOWN INDICATION
     Dosage: 500 MG, QD (1 KEER PER DAG 1 STUK(S))
     Route: 048
  9. OMEPRAZOL [Concomitant]
     Active Substance: OMEPRAZOLE
     Indication: PRODUCT USED FOR UNKNOWN INDICATION
     Dosage: 40 MG, QD (1 KEER PER DAG 1 STUK(S))
     Route: 048
  10. QUETIAPINE. [Concomitant]
     Active Substance: QUETIAPINE
     Indication: PRODUCT USED FOR UNKNOWN INDICATION
     Dosage: 25 MG, QD (1 KEER PER DAG 1 STUK(S))
     Route: 048

REACTIONS (2)
  - Depressed level of consciousness [Recovered/Resolved]
  - Drug interaction [Recovered/Resolved]

NARRATIVE: CASE EVENT DATE: 20160401
